FAERS Safety Report 9859057 (Version 1)
Quarter: 2014Q1

REPORT INFORMATION
  Report Type: Spontaneous
  Country: US (occurrence: US)
  Receive Date: 20140131
  Receipt Date: 20140131
  Transmission Date: 20141002
  Serious: Yes (Death)
  Sender: FDA-Public Use
  Company Number: CHPA2014US001525

PATIENT
  Age: 39 Year
  Sex: Male

DRUGS (3)
  1. ACETAMINOPHEN (PARACETAMOL) [Suspect]
     Route: 048
  2. TRAMADOL [Suspect]
     Route: 048
  3. CARBAMAZEPINE [Suspect]
     Route: 048

REACTIONS (1)
  - Completed suicide [Fatal]
